FAERS Safety Report 6572574-6 (Version None)
Quarter: 2010Q1

REPORT INFORMATION
  Report Type: 
  Country: None (occurrence: None)
  Receive Date: 20100205
  Receipt Date: 20100202
  Transmission Date: 20100710
  Serious: Yes (Hospitalization)
  Sender: FDA-Public Use
  Company Number: GXKR2009DE00592

PATIENT
  Age: 70 Year
  Sex: Male
  Weight: 91.5 kg

DRUGS (16)
  1. CARVEDILOL [Suspect]
     Dosage: 12.5 MG, QD
     Route: 048
  2. DIGITOXIN INJ [Interacting]
     Indication: CARDIAC FAILURE
     Dosage: 0.07 MG, QD
     Route: 048
     Dates: start: 20080625, end: 20080720
  3. ACETYLSALICYLIC ACID [Concomitant]
     Indication: CARDIOVASCULAR EVENT PROPHYLAXIS
     Dosage: 100 MG, QD
     Dates: start: 20000101
  4. PLAVIX [Concomitant]
     Indication: CARDIOVASCULAR EVENT PROPHYLAXIS
     Dosage: 75 MEQ/KG, QD
     Route: 048
     Dates: start: 20060401, end: 20080720
  5. MOXONIDINE [Concomitant]
     Indication: HYPERTENSION
     Dosage: 0.2 MG, 3 IN DAY
     Route: 048
  6. ALLOPURINOL [Concomitant]
     Indication: HYPERURICAEMIA
     Dosage: 50 MG, QD
     Route: 048
  7. LOCOL [Concomitant]
     Indication: HYPERCHOLESTEROLAEMIA
     Dosage: 20 MG, QD
  8. ACETOLYT [Concomitant]
     Indication: ACIDOSIS
     Dosage: 2.5 G, QD
     Route: 048
     Dates: end: 20080720
  9. NEORECORMON ^ROCHE^ [Concomitant]
     Indication: ANAEMIA
     Dosage: 4000 IU, 2 IN MONTH
     Route: 058
  10. EINSALPHA [Concomitant]
     Indication: HYPERPARATHYROIDISM
     Dosage: 0.25 UG, QD
     Route: 048
     Dates: start: 20080520
  11. TOREM [Concomitant]
     Indication: HYPERTENSION
     Dosage: 20 MG, 3 IN DAY
     Route: 048
  12. DIOVANE [Concomitant]
     Indication: HYPERTENSION
     Dosage: 160 MG, QD
  13. XIPAMIDE [Concomitant]
     Indication: HYPERTENSION
     Dosage: 20 MG, QD
     Route: 048
     Dates: start: 20080625
  14. PANTOZOL [Concomitant]
     Indication: HELICOBACTER GASTRITIS
     Dosage: 40 MG, BID
     Route: 048
  15. EBRANTIL [Concomitant]
     Indication: HYPERTENSION
     Dosage: 60 MG, 2 IN DAY
     Route: 048
  16. METAMIZOLE [Concomitant]
     Indication: OSTEOARTHRITIS
     Dosage: 500 MG, UNK
     Route: 048
     Dates: start: 19900101

REACTIONS (1)
  - NAUSEA [None]
